FAERS Safety Report 9150965 (Version 1)
Quarter: 2013Q1

REPORT INFORMATION
  Report Type: Spontaneous
  Country: US (occurrence: US)
  Receive Date: 20130308
  Receipt Date: 20130308
  Transmission Date: 20140127
  Serious: No
  Sender: FDA-Public Use
  Company Number: US-GLAXOSMITHKLINE-A0982583A

PATIENT
  Age: 52 Year
  Sex: Female

DRUGS (4)
  1. OLUX E [Suspect]
     Indication: PSORIASIS
     Dosage: 1APP PER DAY
     Route: 061
  2. BUDESONIDE [Concomitant]
     Route: 061
  3. SYMBICORT [Concomitant]
  4. OXYGEN [Concomitant]

REACTIONS (2)
  - Application site erythema [Recovering/Resolving]
  - Product quality issue [Unknown]
